FAERS Safety Report 4980257-9 (Version None)
Quarter: 2006Q2

REPORT INFORMATION
  Report Type: 
  Country: None (occurrence: None)
  Receive Date: 20060424
  Receipt Date: 20060329
  Transmission Date: 20061013
  Serious: Yes (Hospitalization, Other)
  Sender: FDA-Public Use
  Company Number: PHBS2006JP04911

PATIENT
  Age: 27 Year
  Sex: Female
  Weight: 60 kg

DRUGS (5)
  1. METOPROLOL TARTRATE [Suspect]
     Indication: LONG QT SYNDROME CONGENITAL
     Dosage: 120 MG/DAY
     Route: 048
     Dates: start: 20030101, end: 20040515
  2. FLECAINIDE ACETATE [Concomitant]
     Dosage: 100 MG/DAY
     Dates: start: 20040415
  3. MEXILETINE HYDROCHLORIDE [Concomitant]
     Indication: LONG QT SYNDROME CONGENITAL
     Dosage: 300 MG/DAY
     Route: 048
     Dates: start: 20040510
  4. VERAPAMIL [Concomitant]
     Dosage: 5 MG/DAY
     Dates: end: 20040415
  5. NICORANDIL [Concomitant]
     Dosage: 5 MG/DAY
     Dates: start: 20040415

REACTIONS (10)
  - BRADYCARDIA [None]
  - CARDIAC PACEMAKER INSERTION [None]
  - DIARRHOEA [None]
  - DYSPNOEA [None]
  - ELECTROCARDIOGRAM QT PROLONGED [None]
  - MOOD ALTERED [None]
  - SYNCOPE [None]
  - TORSADE DE POINTES [None]
  - URINARY INCONTINENCE [None]
  - VENTRICULAR EXTRASYSTOLES [None]
